FAERS Safety Report 6258052-2 (Version None)
Quarter: 2009Q3

REPORT INFORMATION
  Report Type: 
  Country: None (occurrence: None)
  Receive Date: 20090702
  Receipt Date: 20090616
  Transmission Date: 20100115
  Serious: No
  Sender: FDA-Public Use
  Company Number: TCI2009A02208

PATIENT

DRUGS (3)
  1. CERCINE INJECTION (DIAZEPAM) [Suspect]
     Indication: SEDATION
     Dates: start: 20090527
  2. TAKEPRON OD (LANSOPRAZOLE) [Suspect]
     Route: 048
  3. OPYSTAN (PETHIDINE HYDROCHLORIDE) [Concomitant]

REACTIONS (2)
  - DEPRESSED LEVEL OF CONSCIOUSNESS [None]
  - DRUG INTERACTION [None]
